FAERS Safety Report 6029339-3 (Version None)
Quarter: 2009Q1

REPORT INFORMATION
  Report Type: 
  Country: None (occurrence: None)
  Receive Date: 20090106
  Receipt Date: 20081225
  Transmission Date: 20090719
  Serious: Yes (Life-Threatening, Hospitalization)
  Sender: FDA-Public Use
  Company Number: JP-MERCK-0812USA02829

PATIENT
  Age: 68 Year
  Sex: Female
  Weight: 42 kg

DRUGS (9)
  1. PEPCID RPD [Suspect]
     Indication: GASTRITIS
     Route: 048
     Dates: start: 20081017
  2. PROGRAF [Suspect]
     Indication: RHEUMATOID ARTHRITIS
     Route: 048
     Dates: start: 20081121, end: 20081203
  3. AZULFIDINE EN-TABS [Suspect]
     Indication: RHEUMATOID ARTHRITIS
     Route: 048
     Dates: start: 20081011, end: 20081203
  4. PREDONINE [Suspect]
     Indication: INTERSTITIAL LUNG DISEASE
     Route: 048
     Dates: start: 20081017, end: 20081107
  5. PREDONINE [Suspect]
     Route: 048
     Dates: start: 20081108, end: 20081120
  6. PREDONINE [Suspect]
     Route: 048
     Dates: start: 20081121
  7. FOSAMAX [Concomitant]
     Route: 048
     Dates: start: 20081020, end: 20081203
  8. COTRIM [Concomitant]
     Route: 048
     Dates: start: 20081106, end: 20081203
  9. MAGLAX [Concomitant]
     Route: 065
     Dates: start: 20081029, end: 20081203

REACTIONS (2)
  - AGRANULOCYTOSIS [None]
  - SEPSIS [None]
